FAERS Safety Report 24103950 (Version 2)
Quarter: 2024Q3

REPORT INFORMATION
  Report Type: Spontaneous
  Country: CA (occurrence: CA)
  Receive Date: 20240717
  Receipt Date: 20240721
  Transmission Date: 20241017
  Serious: Yes (Hospitalization, Other)
  Sender: STRIDES
  Company Number: None

PATIENT
  Age: 7 Year
  Sex: Male

DRUGS (2)
  1. NAPROXEN [Suspect]
     Active Substance: NAPROXEN
     Indication: Juvenile idiopathic arthritis
     Dosage: 250 MILLIGRAM, EVERY 12 HRS (BID)
     Route: 065
  2. ADVIL [Concomitant]
     Active Substance: IBUPROFEN\IBUPROFEN SODIUM
     Indication: Arthralgia
     Dosage: UNK, EVERY 8 HOURS (3?/DAY FOR THE PAST 4-6 WEEKS)
     Route: 065

REACTIONS (4)
  - Iron deficiency anaemia [Unknown]
  - Microcytic anaemia [Recovered/Resolved]
  - Iron deficiency [Recovered/Resolved]
  - Gastrointestinal haemorrhage [Unknown]
